FAERS Safety Report 10936561 (Version 1)
Quarter: 2015Q1

REPORT INFORMATION
  Report Type: Spontaneous
  Country: US (occurrence: None)
  Receive Date: 20150212
  Receipt Date: 20150212
  Transmission Date: 20150721
  Serious: No
  Sender: FDA-Public Use
  Company Number: TPA2010A06384

PATIENT
  Age: 82 Year
  Sex: Female
  Weight: 86.18 kg

DRUGS (13)
  1. ULORIC [Suspect]
     Active Substance: FEBUXOSTAT
     Indication: GOUT
     Route: 048
     Dates: start: 20100319, end: 20100519
  2. ALPRAZOLAM. [Concomitant]
     Active Substance: ALPRAZOLAM
  3. VALSARTAN. [Concomitant]
     Active Substance: VALSARTAN
  4. IBUPROFEN. [Concomitant]
     Active Substance: IBUPROFEN
  5. OMEPRAZOLE. [Concomitant]
     Active Substance: OMEPRAZOLE
  6. LOVASTATIN. [Concomitant]
     Active Substance: LOVASTATIN
  7. FISH OIL [Concomitant]
     Active Substance: FISH OIL
  8. METOPROLOL [Concomitant]
     Active Substance: METOPROLOL
  9. SERTRALINE [Concomitant]
     Active Substance: SERTRALINE HYDROCHLORIDE
  10. UNKNOWN CREAMS (ALL OTHER THERAPEUTIC PRODUCTS) [Concomitant]
  11. FUROSEMIDE. [Concomitant]
     Active Substance: FUROSEMIDE
  12. AMLODIPINE [Concomitant]
     Active Substance: AMLODIPINE BESYLATE
  13. ACETAMINOPHEN (PARACETAMOL) [Concomitant]
     Active Substance: ACETAMINOPHEN

REACTIONS (4)
  - Dysphonia [None]
  - Oropharyngeal pain [None]
  - Malaise [None]
  - Stomatitis [None]

NARRATIVE: CASE EVENT DATE: 2010
